FAERS Safety Report 15310844 (Version 1)
Quarter: 2018Q3

REPORT INFORMATION
  Report Type: Spontaneous
  Country: US (occurrence: US)
  Receive Date: 20180813
  Receipt Date: 20180813
  Transmission Date: 20181010
  Serious: Yes (Other)
  Sender: FDA-Public Use
  Company Number: None

PATIENT
  Age: 13 Year
  Sex: Female
  Weight: 59.85 kg

DRUGS (10)
  1. AIMOVIG [Suspect]
     Active Substance: ERENUMAB-AOOE
     Indication: MIGRAINE
     Dates: start: 20180613
  2. FROVATRIPTAN. [Concomitant]
     Active Substance: FROVATRIPTAN
  3. CAMPEZINE [Concomitant]
  4. ADVIL [Concomitant]
     Active Substance: IBUPROFEN
  5. DICLOFENAC [Concomitant]
     Active Substance: DICLOFENAC
  6. ZOFRAN [Concomitant]
     Active Substance: ONDANSETRON HYDROCHLORIDE
  7. DRAMAMINE [Concomitant]
     Active Substance: DIMENHYDRINATE
  8. EXCEDRIN [Concomitant]
     Active Substance: ACETAMINOPHEN\ASPIRIN\CAFFEINE
  9. BENADRYL [Concomitant]
     Active Substance: DIPHENHYDRAMINE HYDROCHLORIDE
  10. TYLENOL [Concomitant]
     Active Substance: ACETAMINOPHEN

REACTIONS (1)
  - Alopecia [None]

NARRATIVE: CASE EVENT DATE: 20180620
